FAERS Safety Report 23973961 (Version 1)
Quarter: 2024Q2

REPORT INFORMATION
  Report Type: Spontaneous
  Country: FR (occurrence: FR)
  Receive Date: 20240613
  Receipt Date: 20240613
  Transmission Date: 20240716
  Serious: Yes (Other)
  Sender: FDA-Public Use
  Company Number: None

PATIENT
  Age: 64 Year
  Sex: Female
  Weight: 56 kg

DRUGS (2)
  1. GLUCAGEN [Suspect]
     Active Substance: GLUCAGON HYDROCHLORIDE
     Indication: Magnetic resonance imaging abdominal
     Dosage: 1 ML
     Route: 058
     Dates: start: 20240528, end: 20240528
  2. CLARISCAN [Suspect]
     Active Substance: GADOTERATE MEGLUMINE
     Indication: Magnetic resonance imaging abdominal
     Dosage: 11 ML
     Route: 042
     Dates: start: 20240528, end: 20240528

REACTIONS (3)
  - Loss of consciousness [Recovered/Resolved]
  - Diarrhoea [Recovered/Resolved]
  - Vomiting [Recovered/Resolved]

NARRATIVE: CASE EVENT DATE: 20240528
